FAERS Safety Report 7827922-3 (Version None)
Quarter: 2011Q4

REPORT INFORMATION
  Report Type: 
  Country: None (occurrence: None)
  Receive Date: 20111020
  Receipt Date: 20111013
  Transmission Date: 20120403
  Serious: Yes (Hospitalization, Disabling)
  Sender: FDA-Public Use
  Company Number: GB-UCBSA-043457

PATIENT
  Age: 13 Year
  Sex: Female
  Weight: 64.6 kg

DRUGS (8)
  1. METHYLPREDNISOLONE [Suspect]
  2. LEVETIRACETAM [Suspect]
     Indication: CONVULSION
     Dates: start: 20100501, end: 20100101
  3. CALCIUM CARBONATE [Concomitant]
     Dates: start: 20101101
  4. POTASSIUM CITRATE [Concomitant]
     Dates: start: 20101201
  5. LEVETIRACETAM [Suspect]
     Dates: start: 20100101, end: 20100101
  6. LEVETIRACETAM [Suspect]
     Dates: start: 20100101
  7. ERGOCALCIFEROL [Concomitant]
     Dates: start: 20101101
  8. LEVETIRACETAM [Suspect]
     Dates: start: 20100101, end: 20100101

REACTIONS (5)
  - HEADACHE [None]
  - NAUSEA [None]
  - HASHIMOTO'S ENCEPHALOPATHY [None]
  - FALL [None]
  - RASH VESICULAR [None]
